FAERS Safety Report 23235342 (Version 1)
Quarter: 2023Q4

REPORT INFORMATION
  Report Type: Report from Study
  Country: IT (occurrence: IT)
  Receive Date: 20231128
  Receipt Date: 20231128
  Transmission Date: 20240110
  Serious: Yes (Other)
  Sender: FDA-Public Use
  Company Number: None

PATIENT

DRUGS (11)
  1. PEGASPARGASE [Suspect]
     Active Substance: PEGASPARGASE
     Indication: B-cell type acute leukaemia
     Dosage: 2895 U/L, ON 15/09/23 AND 29/09/23
     Route: 042
     Dates: start: 20230915, end: 20230929
  2. DAUNORUBICIN [Suspect]
     Active Substance: DAUNORUBICIN
     Indication: B-cell type acute leukaemia
     Dosage: 35 MG, QD, ON 11, 18, 25/09, 02/10/2023
     Route: 042
     Dates: start: 20230911, end: 20231002
  3. VINCRISTINE [Suspect]
     Active Substance: VINCRISTINE
     Indication: B-cell type acute leukaemia
     Dosage: 1.75 MG, QD, ON 11, 18, 25/09, 02/10/2023
     Route: 042
     Dates: start: 20230911, end: 20231002
  4. PANTOPRAZOLE SODIUM [Concomitant]
     Active Substance: PANTOPRAZOLE SODIUM
     Indication: Prophylaxis against gastrointestinal ulcer
     Dosage: 40 MG, QD
     Route: 042
     Dates: start: 20230905, end: 20231003
  5. PREDNISONE [Concomitant]
     Active Substance: PREDNISONE
     Indication: B-cell type acute leukaemia
     Dosage: 20 MG, QD
     Route: 048
     Dates: start: 20230908, end: 20231003
  6. PREDNISONE [Concomitant]
     Active Substance: PREDNISONE
     Dosage: 2035 MG, QD
     Route: 048
     Dates: start: 20231003, end: 20231005
  7. PREDNISONE [Concomitant]
     Active Substance: PREDNISONE
     Dosage: 15 MG, QD
     Route: 048
     Dates: start: 20231006, end: 20231008
  8. PREDNISONE [Concomitant]
     Active Substance: PREDNISONE
     Dosage: 7.5 MG, QD
     Route: 048
     Dates: start: 20231009, end: 20231011
  9. PREDNISONE [Concomitant]
     Active Substance: PREDNISONE
     Dosage: 2.5 MG, QD
     Route: 048
     Dates: start: 20231012, end: 20231013
  10. LANSOPRAZOLE [Concomitant]
     Active Substance: LANSOPRAZOLE
     Indication: Prophylaxis against gastrointestinal ulcer
     Dosage: 15 MG, QD
     Route: 048
     Dates: start: 20231004, end: 20231015
  11. PREDNISONE [Concomitant]
     Active Substance: PREDNISONE
     Indication: B-cell type acute leukaemia
     Dosage: 25 MG, QD
     Route: 048
     Dates: start: 20230908, end: 20231005

REACTIONS (3)
  - Pancytopenia [Recovering/Resolving]
  - Alopecia [Not Recovered/Not Resolved]
  - Anaemia [Recovered/Resolved]

NARRATIVE: CASE EVENT DATE: 20230923
